FAERS Safety Report 10053306 (Version 1)
Quarter: 2014Q2

REPORT INFORMATION
  Report Type: Spontaneous
  Country: GB (occurrence: GB)
  Receive Date: 20140402
  Receipt Date: 20140402
  Transmission Date: 20141212
  Serious: Yes (Other)
  Sender: FDA-Public Use
  Company Number: GB-WATSON-2014-05972

PATIENT
  Age: 43 Year
  Sex: Female

DRUGS (3)
  1. LOSARTAN (UNKNOWN) [Suspect]
     Indication: HYPERTENSION
     Dosage: 100 MG, DAILY
     Route: 048
  2. CITALOPRAM [Concomitant]
     Indication: PRODUCT USED FOR UNKNOWN INDICATION
     Dosage: UNK
     Route: 065
  3. RAMIPRIL [Concomitant]
     Indication: PRODUCT USED FOR UNKNOWN INDICATION
     Dosage: UNK
     Route: 065

REACTIONS (3)
  - Sunburn [Not Recovered/Not Resolved]
  - Pain of skin [Not Recovered/Not Resolved]
  - Photosensitivity reaction [Not Recovered/Not Resolved]
